FAERS Safety Report 5033353-4 (Version None)
Quarter: 2006Q2

REPORT INFORMATION
  Report Type: 
  Country: None (occurrence: None)
  Receive Date: 20060515
  Receipt Date: 20060406
  Transmission Date: 20061013
  Serious: No
  Sender: FDA-Public Use
  Company Number: S06-USA-01431-01

PATIENT
  Age: 65 Year
  Sex: Female

DRUGS (1)
  1. NAMENDA [Suspect]

REACTIONS (2)
  - DIZZINESS [None]
  - GAIT DISTURBANCE [None]
